FAERS Safety Report 18304999 (Version 1)
Quarter: 2020Q3

REPORT INFORMATION
  Report Type: Spontaneous
  Country: US (occurrence: US)
  Receive Date: 20200924
  Receipt Date: 20200924
  Transmission Date: 20201103
  Serious: No
  Sender: FDA-Public Use
  Company Number: US-009507513-2009USA008296

PATIENT
  Age: 12 Year
  Sex: Female

DRUGS (2)
  1. CHOLESTEROL [Suspect]
     Active Substance: CHOLESTEROL
     Indication: CHILD SYNDROME
     Dosage: 40 MG/ML (4%); 1.44 GRAMS
     Route: 061
  2. ZOCOR [Suspect]
     Active Substance: SIMVASTATIN
     Indication: CHILD SYNDROME
     Dosage: 20 MG/ ML (2%) WITH CHOLESTEROL; 9 TABLETS
     Route: 061

REACTIONS (4)
  - Drug effective for unapproved indication [Unknown]
  - Incorrect route of product administration [Unknown]
  - Wrong technique in product usage process [Unknown]
  - Product use in unapproved indication [Unknown]
